FAERS Safety Report 12670579 (Version 9)
Quarter: 2017Q4

REPORT INFORMATION
  Report Type: Spontaneous
  Country: US (occurrence: US)
  Receive Date: 20160822
  Receipt Date: 20171211
  Transmission Date: 20180320
  Serious: Yes (Other)
  Sender: FDA-Public Use
  Company Number: PHHY2016US114210

PATIENT
  Age: 25 Year
  Sex: Female
  Weight: 107.94 kg

DRUGS (4)
  1. ONDANSETRON HYDROCHLORIDE. [Suspect]
     Active Substance: ONDANSETRON HYDROCHLORIDE
     Indication: VOMITING IN PREGNANCY
     Dosage: 2 ML, Q6H
     Route: 042
     Dates: start: 20140623, end: 20140626
  2. ZOFRAN [Suspect]
     Active Substance: ONDANSETRON HYDROCHLORIDE
     Indication: VOMITING IN PREGNANCY
     Dosage: 8 MG, UNK
     Route: 042
     Dates: start: 20131209, end: 20131209
  3. ONDANSETRON HYDROCHLORIDE. [Suspect]
     Active Substance: ONDANSETRON HYDROCHLORIDE
     Indication: VOMITING IN PREGNANCY
     Dosage: 8 MG, UNK
     Route: 048
     Dates: start: 20140103
  4. ZOFRAN [Suspect]
     Active Substance: ONDANSETRON HYDROCHLORIDE
     Indication: VOMITING IN PREGNANCY
     Dosage: 1 DF, TID
     Route: 048
     Dates: start: 20131204

REACTIONS (17)
  - Ear pain [Unknown]
  - Cough [Unknown]
  - Back pain [Unknown]
  - Middle ear effusion [Unknown]
  - Palpitations [Unknown]
  - Headache [Recovered/Resolved]
  - Hypokalaemia [Unknown]
  - Myalgia [Unknown]
  - Rhinorrhoea [Unknown]
  - Premature delivery [Unknown]
  - Otitis media chronic [Unknown]
  - Depression [Unknown]
  - Product use in unapproved indication [Unknown]
  - Maternal exposure during pregnancy [Unknown]
  - Nasal congestion [Unknown]
  - Vertigo [Unknown]
  - Muscle spasms [Unknown]

NARRATIVE: CASE EVENT DATE: 20140623
